FAERS Safety Report 4643161-1 (Version None)
Quarter: 2005Q2

REPORT INFORMATION
  Report Type: 
  Country: None (occurrence: None)
  Receive Date: 20050422
  Receipt Date: 20050419
  Transmission Date: 20051028
  Serious: Yes (Death)
  Sender: FDA-Public Use
  Company Number: GB-MERCK-0504GBR00111

PATIENT
  Sex: Male

DRUGS (12)
  1. COZAAR [Suspect]
     Route: 048
  2. TIOTROPIUM BROMIDE [Suspect]
     Route: 055
  3. ALBUTEROL SULFATE AND IPRATROPIUM BROMIDE [Suspect]
     Route: 055
  4. CITALOPRAM [Suspect]
     Route: 065
  5. MOMETASONE FUROATE [Suspect]
     Route: 065
  6. NYSTATIN [Suspect]
     Route: 065
  7. OXYGEN [Suspect]
     Route: 065
  8. PHOLCODINE TAB [Suspect]
     Route: 065
  9. ALBUTEROL [Suspect]
     Route: 065
  10. FLUTICASONE PROPIONATE AND SALMETEROL XINAFOATE [Suspect]
     Route: 065
  11. LATANOPROST [Suspect]
     Route: 065
  12. ZOPICLONE [Suspect]
     Route: 065

REACTIONS (1)
  - CHRONIC OBSTRUCTIVE PULMONARY DISEASE [None]
